FAERS Safety Report 19950362 (Version 2)
Quarter: 2021Q4

REPORT INFORMATION
  Report Type: Spontaneous
  Country: US (occurrence: US)
  Receive Date: 20211013
  Receipt Date: 20211202
  Transmission Date: 20220303
  Serious: No
  Sender: FDA-Public Use
  Company Number: US-GUERBET-US-20210125

PATIENT
  Age: 50 Year
  Sex: Female

DRUGS (2)
  1. DOTAREM [Suspect]
     Active Substance: GADOTERATE MEGLUMINE
     Indication: Magnetic resonance cholangiopancreatography
     Dosage: 10MMOL PER 20 ML
     Route: 065
     Dates: start: 20210814, end: 20210814
  2. SALINE [Suspect]
     Active Substance: SODIUM CHLORIDE
     Indication: Scan
     Route: 041

REACTIONS (4)
  - Sneezing [Recovered/Resolved]
  - Erythema of eyelid [Unknown]
  - Nausea [Not Recovered/Not Resolved]
  - Vomiting [Recovered/Resolved]

NARRATIVE: CASE EVENT DATE: 20210814
